FAERS Safety Report 6335914-9 (Version None)
Quarter: 2009Q3

REPORT INFORMATION
  Report Type: 
  Country: None (occurrence: None)
  Receive Date: 20090828
  Receipt Date: 20090828
  Transmission Date: 20100115
  Serious: No
  Sender: FDA-Public Use
  Company Number: None

PATIENT
  Age: 46 Year
  Sex: Female

DRUGS (1)
  1. MIRAPEX [Suspect]
     Indication: MULTIPLE SCLEROSIS
     Dosage: 1MG TID PO, 2-3 YEARS
     Route: 048

REACTIONS (2)
  - PRODUCT MEASURED POTENCY ISSUE [None]
  - THERAPEUTIC RESPONSE DECREASED [None]
